FAERS Safety Report 5224732-0 (Version None)
Quarter: 2007Q1

REPORT INFORMATION
  Report Type: 
  Country: None (occurrence: None)
  Receive Date: 20070129
  Receipt Date: 20070129
  Transmission Date: 20070707
  Serious: Yes (Life-Threatening, Hospitalization)
  Sender: FDA-Public Use
  Company Number: None

PATIENT
  Sex: Male

DRUGS (8)
  1. WARFARIN SODIUM [Suspect]
     Indication: ATRIAL FIBRILLATION
     Dosage: PO
     Route: 048
     Dates: start: 20061119, end: 20061127
  2. ATENOLOL [Concomitant]
  3. FUROSEMIDE [Concomitant]
  4. GLIPIZIDE [Concomitant]
  5. LEVOTHYROXINE SODIUM [Concomitant]
  6. METFORMIN HCL [Concomitant]
  7. NIFEDIPINE [Concomitant]
  8. ROSIGLITAZONE [Concomitant]

REACTIONS (5)
  - FALL [None]
  - HYPOTENSION [None]
  - RENAL FAILURE ACUTE [None]
  - RETROPERITONEAL HAEMORRHAGE [None]
  - TACHYCARDIA [None]
